FAERS Safety Report 8067430 (Version 6)
Quarter: 2012Q4

REPORT INFORMATION
  Report Type: 
  Country: US (occurrence: US)
  Receive Date: 20110803
  Receipt Date: 20120917
  Transmission Date: 20130627
  Serious: Yes (Congenital Anomaly)
  Sender: FDA-Public Use
  Company Number: US-GLAXOSMITHKLINE-A0871928A

PATIENT
  Age: 0 Year
  Sex: Male

DRUGS (5)
  1. PAXIL [Suspect]
     Indication: PRODUCT USED FOR UNKNOWN INDICATION
     Route: 064
     Dates: start: 1999, end: 2006
  2. PAXIL CR [Suspect]
     Indication: PRODUCT USED FOR UNKNOWN INDICATION
     Dosage: 37.5MG Unknown
     Route: 064
  3. CLARITIN D [Concomitant]
  4. TYLENOL [Concomitant]
  5. ROBITUSSIN [Concomitant]

REACTIONS (8)
  - Cardiac septal defect [Unknown]
  - Atrial septal defect [Unknown]
  - Congenital hand malformation [Unknown]
  - Holt-Oram syndrome [Unknown]
  - Patent ductus arteriosus [Unknown]
  - Atrial septal defect [Unknown]
  - Hand deformity [Unknown]
  - Foetal exposure during pregnancy [Unknown]
